FAERS Safety Report 21614886 (Version 4)
Quarter: 2023Q1

REPORT INFORMATION
  Report Type: Report from Study
  Country: FR (occurrence: FR)
  Receive Date: 20221118
  Receipt Date: 20230216
  Transmission Date: 20230418
  Serious: Yes (Death, Other)
  Sender: FDA-Public Use
  Company Number: FR-TAKEDA-2022TUS086706

PATIENT
  Age: 73 Year
  Sex: Female

DRUGS (1)
  1. MOBOCERTINIB [Suspect]
     Active Substance: MOBOCERTINIB
     Indication: EGFR gene mutation
     Dosage: UNK UNK, QD
     Route: 065
     Dates: start: 20210415, end: 20210818

REACTIONS (2)
  - Lung adenocarcinoma [Fatal]
  - Metastases to meninges [Fatal]
